FAERS Safety Report 23523563 (Version 1)
Quarter: 2024Q1

REPORT INFORMATION
  Report Type: Spontaneous
  Country: US (occurrence: None)
  Receive Date: 20240214
  Receipt Date: 20240214
  Transmission Date: 20240410
  Serious: Yes (Disabling)
  Sender: FDA-Public Use
  Company Number: None

PATIENT
  Age: 26 Year
  Sex: Male
  Weight: 30.6 kg

DRUGS (6)
  1. POLYETHYLENE GLYCOL 3350 [Suspect]
     Active Substance: POLYETHYLENE GLYCOL 3350
     Indication: Constipation
     Dosage: OTHER QUANTITY : 1 CAP FILLED;?OTHER FREQUENCY : 3-4 TIMES WEEKLY;?OTHER ROUTE : G-TUBE FED;?
     Route: 050
     Dates: start: 20230801, end: 20240214
  2. PRIMIDONE [Concomitant]
     Active Substance: PRIMIDONE
  3. METOPROLOL [Concomitant]
     Active Substance: METOPROLOL
  4. CLONAZEPAM [Concomitant]
     Active Substance: CLONAZEPAM
  5. POLYETHYLENE GLYCOL [Concomitant]
     Active Substance: POLYETHYLENE GLYCOL
  6. VITAMIN D [Concomitant]
     Active Substance: VITAMIN D NOS

REACTIONS (1)
  - Seizure [None]

NARRATIVE: CASE EVENT DATE: 20230801
